FAERS Safety Report 5888115-2 (Version None)
Quarter: 2008Q3

REPORT INFORMATION
  Report Type: 
  Country: None (occurrence: None)
  Receive Date: 20080916
  Receipt Date: 20080916
  Transmission Date: 20090109
  Serious: Yes (Other)
  Sender: FDA-Public Use
  Company Number: None

PATIENT
  Sex: Male

DRUGS (1)
  1. ULTANE [Suspect]
     Indication: ANAESTHESIA
     Dosage: PER VAPORIZER ONCE INHAL
     Route: 055
     Dates: start: 20070914, end: 20070914

REACTIONS (4)
  - CHROMATURIA [None]
  - HEPATITIS CHOLESTATIC [None]
  - JAUNDICE [None]
  - LETHARGY [None]
